FAERS Safety Report 10472398 (Version 7)
Quarter: 2015Q3

REPORT INFORMATION
  Report Type: Report from Study
  Country: BR (occurrence: BR)
  Receive Date: 20140924
  Receipt Date: 20150706
  Transmission Date: 20151125
  Serious: Yes (Death, Hospitalization, Other)
  Sender: FDA-Public Use
  Company Number: PHHY2014BR123156

PATIENT
  Age: 76 Year
  Sex: Male
  Weight: 72 kg

DRUGS (6)
  1. SANDOSTATIN LAR DEPOT [Suspect]
     Active Substance: OCTREOTIDE ACETATE
     Indication: NEUROENDOCRINE TUMOUR
     Dosage: 20 MG, UNK
     Route: 030
  2. SANDOSTATIN LAR DEPOT [Suspect]
     Active Substance: OCTREOTIDE ACETATE
     Dosage: 2 DF (AMPOULE OF 30 MG), QMO
     Route: 030
     Dates: start: 2012, end: 201501
  3. AFINITOR [Suspect]
     Active Substance: EVEROLIMUS
     Indication: HEPATIC NEOPLASM
     Dosage: 1 DF, QD
     Route: 065
     Dates: start: 2013, end: 2014
  4. INTERFERON ALFA NOS [Suspect]
     Active Substance: INTERFERON ALFA-2A OR INTERFERON ALFA-2B
     Indication: METASTASES TO BONE
     Dosage: 3000000 MG, ON MONDAY, WEDNESDAY AND FRIDAY
     Route: 065
     Dates: start: 201405
  5. SANDOSTATIN [Suspect]
     Active Substance: OCTREOTIDE ACETATE
     Dosage: 3 ML, Q12H
     Route: 058
     Dates: start: 20150415, end: 20150523
  6. SANDOSTATIN [Suspect]
     Active Substance: OCTREOTIDE ACETATE
     Indication: NEUROENDOCRINE TUMOUR
     Dosage: 3 UG, Q8H
     Route: 058
     Dates: start: 201404

REACTIONS (22)
  - Fall [Fatal]
  - Asthenia [Fatal]
  - Abasia [Recovering/Resolving]
  - Erythema [Recovering/Resolving]
  - Hypertension [Recovering/Resolving]
  - Memory impairment [Fatal]
  - Cerebral disorder [Fatal]
  - Abdominal distension [Fatal]
  - Purulent discharge [Fatal]
  - Pain [Fatal]
  - Swelling [Fatal]
  - Weight decreased [Not Recovered/Not Resolved]
  - Slow speech [Fatal]
  - Tremor [Recovering/Resolving]
  - Muscle spasms [Recovering/Resolving]
  - Ileus paralytic [Fatal]
  - Malignant neoplasm progression [Fatal]
  - Syncope [Fatal]
  - Dysphagia [Fatal]
  - Hypovitaminosis [Unknown]
  - Platelet count decreased [Unknown]
  - Abdominal pain upper [Recovering/Resolving]

NARRATIVE: CASE EVENT DATE: 201404
